FAERS Safety Report 10184775 (Version 1)
Quarter: 2014Q2

REPORT INFORMATION
  Report Type: Report from Study
  Country: AU (occurrence: AU)
  Receive Date: 20140521
  Receipt Date: 20140521
  Transmission Date: 20141212
  Serious: Yes (Other)
  Sender: FDA-Public Use
  Company Number: PHHY2014AU059312

PATIENT
  Sex: Male

DRUGS (1)
  1. CLOZARIL [Suspect]
     Dosage: 200 MG, UNK
     Dates: start: 20140221, end: 20140420

REACTIONS (4)
  - Munchausen^s syndrome [Unknown]
  - Asperger^s disorder [Unknown]
  - Malignant melanoma [Unknown]
  - Blood count abnormal [Unknown]
